FAERS Safety Report 7010800-X (Version None)
Quarter: 2010Q3

REPORT INFORMATION
  Report Type: 
  Country: None (occurrence: None)
  Receive Date: 20100923
  Receipt Date: 20100916
  Transmission Date: 20110219
  Serious: Yes (Hospitalization)
  Sender: FDA-Public Use
  Company Number: PHHY2010US62475

PATIENT
  Age: 25 Year
  Sex: Female

DRUGS (1)
  1. FANAPT [Suspect]
     Dosage: 6 MG, BID
     Route: 048
     Dates: start: 20100715

REACTIONS (1)
  - PARALYSIS [None]
